FAERS Safety Report 8985419 (Version 3)
Quarter: 2013Q1

REPORT INFORMATION
  Report Type: Report from Study
  Country: JP (occurrence: JP)
  Receive Date: 20121226
  Receipt Date: 20130329
  Transmission Date: 20140127
  Serious: Yes (Other)
  Sender: FDA-Public Use
  Company Number: JP-AMGEN-JPNCT2012083165

PATIENT
  Age: 9 Year
  Sex: Female
  Weight: 36 kg

DRUGS (35)
  1. ROMIPLOSTIM - KHK [Suspect]
     Indication: IDIOPATHIC THROMBOCYTOPENIC PURPURA
     Dosage: 1.07 MUG/KG, QD
     Route: 058
     Dates: start: 20120228, end: 20120228
  2. ROMIPLOSTIM - KHK [Suspect]
     Dosage: 2.1 MUG/KG, QD
     Route: 058
     Dates: start: 20120306, end: 20120306
  3. ROMIPLOSTIM - KHK [Suspect]
     Dosage: 3.18 MUG/KG, QD
     Route: 058
     Dates: start: 20120313, end: 20120313
  4. ROMIPLOSTIM - KHK [Suspect]
     Dosage: 4.24 MUG/KG, QDUNK
     Route: 058
     Dates: start: 20120319, end: 20120319
  5. ROMIPLOSTIM - KHK [Suspect]
     Dosage: 4.93 MUG/KG, QD
     Route: 058
     Dates: start: 20120328, end: 20120328
  6. ROMIPLOSTIM - KHK [Suspect]
     Dosage: 5.68 MUG/KG, QWK
     Route: 058
     Dates: start: 20120403, end: 20120411
  7. ROMIPLOSTIM - KHK [Suspect]
     Dosage: 6.76 MUG/KG, QD
     Route: 058
     Dates: start: 20120418, end: 20120418
  8. ROMIPLOSTIM - KHK [Suspect]
     Dosage: 6.89 MUG/KG, QD
     Route: 058
     Dates: start: 20120425, end: 20120425
  9. ROMIPLOSTIM - KHK [Suspect]
     Dosage: 7.76 MUG/KG, QD
     Route: 058
     Dates: start: 20120502, end: 20120502
  10. ROMIPLOSTIM - KHK [Suspect]
     Dosage: 8.79 MUG/KG, QD
     Route: 058
     Dates: start: 20120509, end: 20120509
  11. ROMIPLOSTIM - KHK [Suspect]
     Dosage: 9.72 MUG/KG, QWK
     Route: 058
     Dates: start: 20120516, end: 20120601
  12. ROMIPLOSTIM - KHK [Suspect]
     Dosage: 9.50 MUG/KG, QWK
     Route: 058
     Dates: start: 20120608, end: 20120621
  13. ROMIPLOSTIM - KHK [Suspect]
     Dosage: 9.59 MUG/KG, QD
     Route: 058
     Dates: start: 20120627, end: 20120627
  14. ROMIPLOSTIM - KHK [Suspect]
     Dosage: 9.45 MUG/KG, QD
     Route: 058
     Dates: start: 20120706, end: 20120706
  15. ROMIPLOSTIM - KHK [Suspect]
     Dosage: 9.46 MUG/KG, QD
     Route: 058
     Dates: start: 20120713, end: 20120713
  16. ROMIPLOSTIM - KHK [Suspect]
     Dosage: 9.33 MUG/KG, QD
     Route: 058
     Dates: start: 20120720, end: 20120720
  17. ROMIPLOSTIM - KHK [Suspect]
     Dosage: 9.49 MUG/KG, QD
     Route: 058
     Dates: start: 20120725, end: 20120725
  18. ROMIPLOSTIM - KHK [Suspect]
     Dosage: 9.32 MUG/KG, QD
     Route: 058
     Dates: start: 20120803, end: 20120803
  19. ROMIPLOSTIM - KHK [Suspect]
     Dosage: 9.26 MUG/KG, QD
     Route: 058
     Dates: start: 20120810, end: 20120810
  20. ROMIPLOSTIM - KHK [Suspect]
     Dosage: 9.13 MUG/KG, QD
     Route: 058
     Dates: start: 20120817, end: 20120817
  21. ROMIPLOSTIM - KHK [Suspect]
     Dosage: 9.07 MUG/KG, QD
     Route: 058
     Dates: start: 20120824, end: 20120824
  22. ROMIPLOSTIM - KHK [Suspect]
     Dosage: 6.47 MUG/KG, QD
     Route: 058
     Dates: start: 20120831, end: 20120831
  23. ROMIPLOSTIM - KHK [Suspect]
     Dosage: 3.32 MUG/KG, QD
     Route: 058
     Dates: start: 20120906, end: 20120906
  24. MAGMITT [Concomitant]
     Indication: CONSTIPATION
     Dosage: UNK
     Route: 048
  25. GASTER D [Concomitant]
     Indication: ABDOMINAL PAIN
     Dosage: UNK
     Route: 048
  26. BIO-THREE [Concomitant]
     Indication: ABDOMINAL PAIN
     Dosage: UNK
     Route: 048
  27. ALESION [Concomitant]
     Indication: UPPER RESPIRATORY TRACT INFLAMMATION
     Dosage: UNK
     Route: 048
  28. COCARL [Concomitant]
     Indication: UPPER RESPIRATORY TRACT INFLAMMATION
     Dosage: UNK
     Route: 048
  29. CEPHARANTHINE [Concomitant]
     Indication: IDIOPATHIC THROMBOCYTOPENIC PURPURA
     Dosage: 30 MG, UNK
     Route: 048
     Dates: start: 20111226, end: 20120229
  30. NEORAL [Concomitant]
     Indication: IDIOPATHIC THROMBOCYTOPENIC PURPURA
     Dosage: 80 MG, UNK
     Route: 048
     Dates: start: 20120209, end: 20120312
  31. MAGLAX [Concomitant]
     Indication: CONSTIPATION
     Dosage: UNK
     Route: 048
  32. LAXOBERON [Concomitant]
     Indication: CONSTIPATION
     Dosage: UNK
     Route: 048
  33. GAMOFA D [Concomitant]
     Indication: GASTRITIS
     Dosage: UNK
     Route: 048
  34. SP [Concomitant]
     Indication: PHARYNGITIS
     Dosage: UNK
     Route: 049
  35. LIFOROS [Concomitant]
     Indication: CONSTIPATION
     Dosage: UNK
     Route: 048

REACTIONS (2)
  - Megakaryocytes abnormal [Recovered/Resolved]
  - White blood cell count increased [Recovering/Resolving]
